FAERS Safety Report 9472253 (Version 2)
Quarter: 2013Q4

REPORT INFORMATION
  Report Type: Spontaneous
  Country: US (occurrence: US)
  Receive Date: 20130823
  Receipt Date: 20131206
  Transmission Date: 20140711
  Serious: No
  Sender: FDA-Public Use
  Company Number: US-009507513-1308USA008762

PATIENT
  Sex: Female

DRUGS (1)
  1. NASONEX [Suspect]
     Indication: HYPERSENSITIVITY
     Dosage: 4 SPRAYS A DAY
     Route: 045
     Dates: start: 20130813

REACTIONS (2)
  - Drug dose omission [Unknown]
  - Product quality issue [Unknown]
